FAERS Safety Report 20588921 (Version 4)
Quarter: 2023Q1

REPORT INFORMATION
  Report Type: Report from Study
  Country: DE (occurrence: DE)
  Receive Date: 20220314
  Receipt Date: 20230109
  Transmission Date: 20230417
  Serious: Yes (Other)
  Sender: FDA-Public Use
  Company Number: DE-002147023-PHHY2018DE114370

PATIENT
  Sex: Female
  Weight: 87 kg

DRUGS (11)
  1. LETROZOLE [Suspect]
     Active Substance: LETROZOLE
     Indication: Breast cancer metastatic
     Dosage: 2.5 MILLIGRAM, QD
     Route: 048
     Dates: start: 20180526
  2. KISQALI [Suspect]
     Active Substance: RIBOCICLIB
     Indication: Breast cancer metastatic
     Dosage: 600 MILLIGRAM, ONCE DAILY/2 WEEKS/1WEEK PAUSE
     Route: 048
     Dates: start: 20180603, end: 20180616
  3. KISQALI [Suspect]
     Active Substance: RIBOCICLIB
     Dosage: 600 MILLIGRAM, QD,  3 WEEK/1 WEEK PAUSE
     Route: 048
     Dates: start: 20180722, end: 20180811
  4. KISQALI [Suspect]
     Active Substance: RIBOCICLIB
     Dosage: 600 MILLIGRAM, ONCE DAILY/3WEEKS/1 WEEK PAUSE
     Route: 048
     Dates: start: 20180624, end: 20180714
  5. KISQALI [Suspect]
     Active Substance: RIBOCICLIB
     Dosage: 600 MILLIGRAM, ONCE DAILY/3WEEKS/1 WEEK PAUSE
     Route: 048
     Dates: start: 20180923, end: 20180923
  6. KISQALI [Suspect]
     Active Substance: RIBOCICLIB
     Dosage: 600 MILLIGRAM, ONCE DAILY/3WEEKS/1 WEEK PAUSE
     Route: 048
     Dates: start: 20180826, end: 20180915
  7. KISQALI [Suspect]
     Active Substance: RIBOCICLIB
     Dosage: 600 MILLIGRAM, ONCE DAILY/ 2 WEEKS/ 1 WEEK PAUSE
     Route: 048
     Dates: start: 20180513, end: 20180529
  8. KISQALI [Suspect]
     Active Substance: RIBOCICLIB
     Dosage: 400 MILLIGRAM, ONCE DAILY/3WEEKS/1 WEEK PAUSE
     Route: 048
     Dates: start: 20180924, end: 20181013
  9. KISQALI [Suspect]
     Active Substance: RIBOCICLIB
     Dosage: 400 MILLIGRAM, ONCE DAILY/3WEEKS/1 WEEK PAUSE
     Route: 048
     Dates: start: 20181021, end: 20211112
  10. KISQALI [Suspect]
     Active Substance: RIBOCICLIB
     Dosage: 400 MILLIGRAM, QD
     Route: 048
     Dates: start: 20211128, end: 20211218
  11. AFINITOR [Concomitant]
     Active Substance: EVEROLIMUS
     Indication: Breast cancer metastatic
     Dosage: 10 MILLIGRAM, QD, 10 MG, QD
     Route: 048
     Dates: start: 20220221

REACTIONS (7)
  - Leukopenia [Recovered/Resolved]
  - Neutrophil count decreased [Recovered/Resolved]
  - Neutropenia [Unknown]
  - Fatigue [Not Recovered/Not Resolved]
  - Hyperhidrosis [Not Recovered/Not Resolved]
  - Nausea [Not Recovered/Not Resolved]
  - Dyspnoea [Not Recovered/Not Resolved]

NARRATIVE: CASE EVENT DATE: 20180601
